FAERS Safety Report 9018120 (Version 1)
Quarter: 2013Q1

REPORT INFORMATION
  Report Type: Spontaneous
  Country: US (occurrence: None)
  Receive Date: 20130110
  Receipt Date: 20130110
  Transmission Date: 20140127
  Serious: Yes (Hospitalization, Other)
  Sender: FDA-Public Use
  Company Number: None

PATIENT
  Age: 44 Year
  Sex: Male

DRUGS (1)
  1. ISONIAZID [Suspect]
     Route: 055
     Dates: start: 20100426, end: 20100617

REACTIONS (2)
  - Alanine aminotransferase increased [None]
  - Gamma-glutamyltransferase increased [None]
